FAERS Safety Report 8283177-X (Version None)
Quarter: 2012Q2

REPORT INFORMATION
  Report Type: 
  Country: None (occurrence: None)
  Receive Date: 20120413
  Receipt Date: 20120410
  Transmission Date: 20120825
  Serious: Yes (Life-Threatening, Hospitalization)
  Sender: FDA-Public Use
  Company Number: US-JNJFOC-20120404639

PATIENT
  Age: 40 Year
  Sex: Female

DRUGS (8)
  1. TRAMADOL HCL [Suspect]
     Indication: PRODUCT USED FOR UNKNOWN INDICATION
     Dosage: 60 TRAMADOL 37.5 MG,
     Route: 065
  2. GASTROINTESTINAL AGENT [Suspect]
     Indication: PRODUCT USED FOR UNKNOWN INDICATION
     Route: 065
  3. ROPINIROLE [Suspect]
     Indication: PRODUCT USED FOR UNKNOWN INDICATION
     Route: 065
  4. NUCYNTA [Suspect]
     Indication: PRODUCT USED FOR UNKNOWN INDICATION
     Dosage: 17 NUCYNTA 100 MG
     Route: 065
  5. BETA BLOCKERS, NOS [Suspect]
     Indication: PRODUCT USED FOR UNKNOWN INDICATION
     Route: 065
  6. PROTON PUMP INHIBITORS [Suspect]
     Indication: PRODUCT USED FOR UNKNOWN INDICATION
     Route: 065
  7. ANTICONVULSANT [Suspect]
     Indication: PRODUCT USED FOR UNKNOWN INDICATION
     Route: 065
  8. THYROID TAB [Suspect]
     Indication: PRODUCT USED FOR UNKNOWN INDICATION
     Route: 065

REACTIONS (14)
  - SUICIDE ATTEMPT [None]
  - MULTIPLE DRUG OVERDOSE [None]
  - HYPERHIDROSIS [None]
  - ALANINE AMINOTRANSFERASE INCREASED [None]
  - URINE OUTPUT DECREASED [None]
  - CYANOSIS [None]
  - SOMNOLENCE [None]
  - TROPONIN INCREASED [None]
  - PERIPHERAL COLDNESS [None]
  - ASPARTATE AMINOTRANSFERASE INCREASED [None]
  - GENERALISED OEDEMA [None]
  - TACHYCARDIA [None]
  - STEVENS-JOHNSON SYNDROME [None]
  - BLOOD CREATININE INCREASED [None]
